FAERS Safety Report 5287481-9 (Version None)
Quarter: 2007Q1

REPORT INFORMATION
  Report Type: 
  Country: None (occurrence: None)
  Receive Date: 20070116
  Receipt Date: 20060919
  Transmission Date: 20070707
  Serious: No
  Sender: FDA-Public Use
  Company Number: 2006SP003355

PATIENT
  Age: 68 Year
  Sex: Female
  Weight: 104.3273 kg

DRUGS (5)
  1. LUNESTA [Suspect]
     Indication: INSOMNIA
     Dosage: SEE IMAGE
     Route: 048
     Dates: start: 20060901, end: 20060901
  2. LUNESTA [Suspect]
     Indication: INSOMNIA
     Dosage: SEE IMAGE
     Route: 048
     Dates: start: 20060901, end: 20060901
  3. TOLECTIN [Concomitant]
  4. PROZAC [Concomitant]
  5. PERCOCET [Concomitant]

REACTIONS (1)
  - INSOMNIA [None]
